APPROVED DRUG PRODUCT: CETIRIZINE HYDROCHLORIDE
Active Ingredient: CETIRIZINE HYDROCHLORIDE
Strength: 5MG/5ML
Dosage Form/Route: SOLUTION;ORAL
Application: A078488 | Product #001 | TE Code: AA
Applicant: BIONPHARMA INC
Approved: Oct 6, 2008 | RLD: No | RS: No | Type: RX